FAERS Safety Report 19360656 (Version 1)
Quarter: 2021Q2

REPORT INFORMATION
  Report Type: Report from Study
  Country: None (occurrence: US)
  Receive Date: 20210602
  Receipt Date: 20210602
  Transmission Date: 20210717
  Serious: No
  Sender: FDA-Public Use
  Company Number: US-MDD US OPERATIONS-MDD202009-001889

PATIENT
  Age: 61 Year
  Sex: Female
  Weight: 46.72 kg

DRUGS (4)
  1. CARBIDOPA/LEVODOPA [Concomitant]
     Active Substance: CARBIDOPA\LEVODOPA
     Dosage: NOT PROVIDED
  2. COMTAN [Concomitant]
     Active Substance: ENTACAPONE
     Dosage: NOT PROVIDED
  3. APOKYN [Suspect]
     Active Substance: APOMORPHINE HYDROCHLORIDE
     Indication: PARKINSON^S DISEASE
     Route: 058
     Dates: start: 20200421, end: 20200914
  4. ROPINIROLE. [Concomitant]
     Active Substance: ROPINIROLE
     Dosage: NOT PROVIDED

REACTIONS (5)
  - Nausea [Recovered/Resolved]
  - Fatigue [Recovered/Resolved]
  - Vomiting [Recovered/Resolved]
  - Condition aggravated [Recovered/Resolved]
  - Injection site pain [Recovered/Resolved]

NARRATIVE: CASE EVENT DATE: 20200914
